FAERS Safety Report 8625451-0 (Version None)
Quarter: 2012Q3

REPORT INFORMATION
  Report Type: 
  Country: None (occurrence: None)
  Receive Date: 20120827
  Receipt Date: 20111125
  Transmission Date: 20120928
  Serious: Yes (Life-Threatening)
  Sender: FDA-Public Use
  Company Number: DE-ROCHE-1010091

PATIENT
  Sex: Male
  Weight: 100 kg

DRUGS (6)
  1. ACTIVASE [Suspect]
     Indication: CEREBROVASCULAR ACCIDENT
  2. RAMIPRIL [Suspect]
     Indication: HYPERTENSION
     Route: 048
  3. INSULIN [Concomitant]
     Indication: DIABETES MELLITUS
     Route: 058
  4. SPIRIVA [Concomitant]
     Indication: CHRONIC OBSTRUCTIVE PULMONARY DISEASE
  5. BAYOTENSIN [Concomitant]
     Indication: HYPERTENSION
     Route: 048
  6. FLUTICASONE PROPIONATE/SALMETEROL [Concomitant]
     Indication: CHRONIC OBSTRUCTIVE PULMONARY DISEASE

REACTIONS (3)
  - TONGUE OEDEMA [None]
  - MACROGLOSSIA [None]
  - ANGIOEDEMA [None]
